FAERS Safety Report 6182390-5 (Version None)
Quarter: 2009Q2

REPORT INFORMATION
  Report Type: 
  Country: None (occurrence: None)
  Receive Date: 20090507
  Receipt Date: 20090505
  Transmission Date: 20091009
  Serious: Yes (Death)
  Sender: FDA-Public Use
  Company Number: FR-BRISTOL-MYERS SQUIBB COMPANY-14613244

PATIENT

DRUGS (1)
  1. REYATAZ [Suspect]

REACTIONS (1)
  - HEPATITIS FULMINANT [None]
